FAERS Safety Report 8889500 (Version 1)
Quarter: 2012Q4

REPORT INFORMATION
  Report Type: Spontaneous
  Country: AU (occurrence: None)
  Receive Date: 20121031
  Receipt Date: 20121031
  Transmission Date: 20130627
  Serious: Yes (Hospitalization)
  Sender: FDA-Public Use
  Company Number: AUR-APL-2012-04550

PATIENT
  Age: 61 Year
  Sex: Female
  Weight: 134 kg

DRUGS (10)
  1. CEFAZOLIN [Suspect]
     Indication: DRUG USE FOR UNKNOWN INDICATION
  2. GENTAMICIN SULPHATE [Suspect]
     Route: 048
  3. PROPOFOL [Suspect]
  4. GRANISETRON HYDROCHLORIDE [Suspect]
  5. MIDAZOLAM MALEATE [Suspect]
  6. FENTANYL CITRATE [Suspect]
  7. ROCURONIUM BROMIDE [Suspect]
  8. COVERSYL (PERINDOPRIL) [Concomitant]
  9. GLICIAZIDE (GLICLAZIDE) [Concomitant]
  10. METFORMIN HYDROCHLORIDE (METFORMIN HYDROCHLORIDE) [Concomitant]

REACTIONS (6)
  - Heart rate increased [None]
  - Blood pressure increased [None]
  - Urosepsis [None]
  - Multi-organ failure [None]
  - Hyperthermia malignant [None]
  - Fluid overload [None]
